FAERS Safety Report 18475234 (Version 1)
Quarter: 2020Q4

REPORT INFORMATION
  Report Type: Report from Study
  Country: US (occurrence: US)
  Receive Date: 20201106
  Receipt Date: 20201106
  Transmission Date: 20210114
  Serious: Yes (Hospitalization, Other)
  Sender: FDA-Public Use
  Company Number: US-SHIRE-US202015322

PATIENT
  Sex: Female
  Weight: 90.7 kg

DRUGS (13)
  1. FIRAZYR [Suspect]
     Active Substance: ICATIBANT ACETATE
     Dosage: 30 MILLIGRAM, AS REQ^D
     Route: 058
     Dates: start: 20131106
  2. PROTONIX [Concomitant]
     Active Substance: PANTOPRAZOLE SODIUM
     Indication: PRODUCT USED FOR UNKNOWN INDICATION
  3. TAKHZYRO [Suspect]
     Active Substance: LANADELUMAB-FLYO
     Indication: HYPOGAMMAGLOBULINAEMIA
     Dosage: 300 MILLIGRAM, 1X/2WKS
     Route: 058
     Dates: start: 20181107
  4. FIRAZYR [Suspect]
     Active Substance: ICATIBANT ACETATE
     Indication: HYPOGAMMAGLOBULINAEMIA
     Dosage: 30 MILLIGRAM, AS REQ^D
     Route: 058
     Dates: start: 20190823
  5. AMBIEN [Concomitant]
     Active Substance: ZOLPIDEM TARTRATE
     Indication: PRODUCT USED FOR UNKNOWN INDICATION
  6. FIRAZYR [Suspect]
     Active Substance: ICATIBANT ACETATE
     Dosage: 30 MILLIGRAM, AS REQ^D
     Route: 058
     Dates: start: 20131106
  7. BUPRENORPHINE. [Concomitant]
     Active Substance: BUPRENORPHINE
     Indication: PRODUCT USED FOR UNKNOWN INDICATION
  8. ELIQUIS [Concomitant]
     Active Substance: APIXABAN
     Indication: PRODUCT USED FOR UNKNOWN INDICATION
  9. FIRAZYR [Suspect]
     Active Substance: ICATIBANT ACETATE
     Indication: HYPOGAMMAGLOBULINAEMIA
     Dosage: 30 MILLIGRAM, AS REQ^D
     Route: 058
     Dates: start: 20190823
  10. BENTYL [Concomitant]
     Active Substance: DICYCLOMINE HYDROCHLORIDE
     Indication: PRODUCT USED FOR UNKNOWN INDICATION
  11. TAKHZYRO [Suspect]
     Active Substance: LANADELUMAB-FLYO
     Dosage: 300 MILLIGRAM, 2X A MONTH
     Route: 058
     Dates: start: 20181109
  12. LYRICA [Concomitant]
     Active Substance: PREGABALIN
     Indication: PRODUCT USED FOR UNKNOWN INDICATION
  13. TRAMADOL. [Concomitant]
     Active Substance: TRAMADOL
     Indication: PRODUCT USED FOR UNKNOWN INDICATION

REACTIONS (7)
  - Pneumonia [Unknown]
  - Arthropod sting [Unknown]
  - Functional gastrointestinal disorder [Not Recovered/Not Resolved]
  - Product dose omission issue [Unknown]
  - Intentional product use issue [Unknown]
  - Bronchitis [Unknown]
  - Hereditary angioedema [Unknown]
